FAERS Safety Report 21519354 (Version 2)
Quarter: 2022Q4

REPORT INFORMATION
  Report Type: Spontaneous
  Country: US (occurrence: US)
  Receive Date: 20221028
  Receipt Date: 20221228
  Transmission Date: 20230113
  Serious: Yes (Other)
  Sender: FDA-Public Use
  Company Number: US-BAYER-2022A144149

PATIENT
  Age: 37 Year
  Sex: Female
  Weight: 68.027 kg

DRUGS (1)
  1. MIRENA [Suspect]
     Active Substance: LEVONORGESTREL
     Indication: Contraception
     Dosage: 20?G/DAY
     Route: 015
     Dates: start: 20220908

REACTIONS (4)
  - Pregnancy with contraceptive device [Unknown]
  - Drug ineffective [None]
  - Complication of device removal [None]
  - Device issue [None]

NARRATIVE: CASE EVENT DATE: 20221014
